FAERS Safety Report 4510954-0 (Version None)
Quarter: 2004Q4

REPORT INFORMATION
  Report Type: 
  Country: None (occurrence: None)
  Receive Date: 20040928
  Receipt Date: 20040603
  Transmission Date: 20050328
  Serious: No
  Sender: FDA-Public Use
  Company Number: 04P-163-0263185-00

PATIENT
  Age: 60 Year
  Sex: Female
  Weight: 63.5036 kg

DRUGS (6)
  1. HUMIRA [Suspect]
     Indication: RHEUMATOID ARTHRITIS
     Dosage: 40 MG, 1 IN 2 WK, INJECTION
     Dates: start: 20040321, end: 20040501
  2. NABUMETONE [Concomitant]
  3. SINGULAIR [Concomitant]
  4. CONJUGATED ESTROGEN [Concomitant]
  5. OSTEOPOROSIS [Concomitant]
  6. M.V.I. [Concomitant]

REACTIONS (1)
  - RASH GENERALISED [None]
